FAERS Safety Report 6414011-8 (Version None)
Quarter: 2009Q4

REPORT INFORMATION
  Report Type: 
  Country: None (occurrence: None)
  Receive Date: 20091026
  Receipt Date: 20091013
  Transmission Date: 20100525
  Serious: Yes (Other)
  Sender: FDA-Public Use
  Company Number: PHHY2009BR44372

PATIENT
  Sex: Female

DRUGS (3)
  1. DIOVAN HCT [Suspect]
     Indication: BLOOD PRESSURE
     Dosage: 80/12.5MG 1 TABLET IN MORNING
     Route: 048
  2. CARVEDILOL [Concomitant]
     Dosage: 3.125 MG, QD
  3. ROXFLAN [Concomitant]
     Dosage: 1 DF, QD

REACTIONS (5)
  - ABDOMINAL PAIN [None]
  - DEMENTIA ALZHEIMER'S TYPE [None]
  - FALL [None]
  - GASTROINTESTINAL DISORDER [None]
  - LEFT ATRIAL DILATATION [None]
